FAERS Safety Report 9351889 (Version 1)
Quarter: 2013Q2

REPORT INFORMATION
  Report Type: Spontaneous
  Country: IT (occurrence: IT)
  Receive Date: 20130617
  Receipt Date: 20130617
  Transmission Date: 20140414
  Serious: Yes (Other)
  Sender: FDA-Public Use
  Company Number: IT-ABBOTT-13P-083-1069983-00

PATIENT
  Age: 71 Year
  Sex: Female
  Weight: 84 kg

DRUGS (5)
  1. HUMIRA [Suspect]
     Indication: PSORIATIC ARTHROPATHY
     Dosage: CYCLIC
     Route: 058
     Dates: start: 20111201, end: 20121219
  2. NORVASC [Concomitant]
     Indication: HYPERTENSION
  3. PANTORC (PANTOPRAZOLE) [Concomitant]
     Indication: PROPHYLAXIS AGAINST GASTROINTESTINAL ULCER
  4. FERROGRAD [Concomitant]
     Indication: ANAEMIA
  5. FOLIDEX [Concomitant]
     Indication: ANAEMIA

REACTIONS (6)
  - Bone lesion [Unknown]
  - Breast cancer [Not Recovered/Not Resolved]
  - Cataract [Unknown]
  - Pleural effusion [Unknown]
  - Lymphadenopathy mediastinal [Unknown]
  - Breast mass [Unknown]
